FAERS Safety Report 25351599 (Version 1)
Quarter: 2025Q2

REPORT INFORMATION
  Report Type: Report from Study
  Country: TH (occurrence: TH)
  Receive Date: 20250523
  Receipt Date: 20250523
  Transmission Date: 20250716
  Serious: Yes (Death)
  Sender: ALEXION PHARMACEUTICALS
  Company Number: TH-AstraZeneca-CH-00875585A

PATIENT
  Age: 86 Year

DRUGS (1)
  1. OLAPARIB [Suspect]
     Active Substance: OLAPARIB
     Indication: Prostate cancer metastatic
     Dosage: 300 MILLIGRAM, BID
     Route: 065

REACTIONS (3)
  - Shock [Fatal]
  - Asthenia [Recovering/Resolving]
  - Platelet count decreased [Recovering/Resolving]
